FAERS Safety Report 8956877 (Version 2)
Quarter: 2012Q4

REPORT INFORMATION
  Report Type: 
  Country: JP (occurrence: JP)
  Receive Date: 20121211
  Receipt Date: 20121227
  Transmission Date: 20130627
  Serious: Yes (Hospitalization)
  Sender: FDA-Public Use
  Company Number: JP-VERTEX PHARMACEUTICALS INC.-2012-025863

PATIENT
  Age: 66 Year
  Sex: Male

DRUGS (13)
  1. TELAVIC [Suspect]
     Indication: CHRONIC HEPATITIS C
     Dosage: 1500 mg, qd
     Route: 048
     Dates: start: 20121107, end: 20121111
  2. TELAVIC [Suspect]
     Dosage: 1500 mg, qd
     Route: 048
     Dates: start: 20121113
  3. RIBAVIRIN [Suspect]
     Indication: CHRONIC HEPATITIS C
     Dosage: 800 mg, qd
     Route: 048
     Dates: start: 20121107, end: 20121119
  4. RIBAVIRIN [Suspect]
     Dosage: 400 mg, qd
     Route: 048
     Dates: start: 20121120, end: 20121127
  5. RIBAVIRIN [Suspect]
     Dosage: 200 mg, qd
     Route: 048
     Dates: start: 20121128
  6. PEGINTERFERON ALFA-2B [Suspect]
     Indication: CHRONIC HEPATITIS C
     Dosage: 1.5 ?g/kg, qw
     Route: 058
     Dates: start: 20121107
  7. PEGINTERFERON ALFA-2B [Suspect]
     Dosage: 1.13 ?g/kg, qw
     Route: 058
     Dates: start: 20121114
  8. GASTER [Concomitant]
     Dosage: 40 mg, qd
     Route: 048
     Dates: start: 20121107
  9. PROMAC                             /01312301/ [Concomitant]
     Dosage: 150 mg, qd
     Route: 048
     Dates: start: 20121107
  10. LOXONIN [Concomitant]
     Dosage: 120 mg, qd
     Route: 048
     Dates: start: 20121107
  11. ALOSITOL [Concomitant]
     Dosage: 200 mg, qd
     Route: 048
     Dates: start: 20121107, end: 20121119
  12. DEPAS [Concomitant]
     Dosage: 0.5 mg, qd
     Route: 048
     Dates: start: 20121114
  13. URSO                               /00465701/ [Concomitant]
     Dosage: 600 mg, qd
     Route: 048
     Dates: end: 20121122

REACTIONS (5)
  - Erythema [Recovered/Resolved]
  - Insomnia [Recovered/Resolved]
  - Stomatitis [Recovered/Resolved]
  - Hyperuricaemia [Unknown]
  - Rash [Recovered/Resolved]
